FAERS Safety Report 4359355-9 (Version None)
Quarter: 2004Q2

REPORT INFORMATION
  Report Type: 
  Country: None (occurrence: None)
  Receive Date: 20040512
  Receipt Date: 20040427
  Transmission Date: 20050107
  Serious: Yes (Other)
  Sender: FDA-Public Use
  Company Number: K200400650

PATIENT
  Sex: Female
  Weight: 71.7 kg

DRUGS (5)
  1. ALTACE [Suspect]
     Dosage: ORAL
     Route: 048
     Dates: start: 20011217, end: 20030530
  2. BENICAR [Suspect]
  3. DYAZIDE (TRIAMTERENE, HYDROCHLOROTHIAZIDE) [Concomitant]
  4. FEMHRT (NORETHISTERONE ACETATE) [Concomitant]
  5. PREMARIN (ESTROGENS CONJUGATED) CREAM [Concomitant]

REACTIONS (3)
  - COUGH [None]
  - ENDOMETRIAL CANCER [None]
  - PRE-EXISTING CONDITION IMPROVED [None]
